FAERS Safety Report 8223395-X (Version None)
Quarter: 2012Q1

REPORT INFORMATION
  Report Type: 
  Country: None (occurrence: None)
  Receive Date: 20120316
  Receipt Date: 20120308
  Transmission Date: 20120608
  Serious: Yes (Death, Hospitalization)
  Sender: FDA-Public Use
  Company Number: 2012S1000071

PATIENT
  Age: 50 Year
  Sex: Male

DRUGS (2)
  1. INOMAX [Suspect]
     Indication: CARDIOPULMONARY FAILURE
     Dosage: 20 PPM;CONT;INH
     Route: 055
     Dates: start: 20120307, end: 20120308
  2. INOMAX [Suspect]
     Indication: OXYGEN SATURATION DECREASED
     Dosage: 20 PPM;CONT;INH
     Route: 055
     Dates: start: 20120307, end: 20120308

REACTIONS (1)
  - ANOXIA [None]
